FAERS Safety Report 7806745-5 (Version None)
Quarter: 2011Q4

REPORT INFORMATION
  Report Type: 
  Country: None (occurrence: None)
  Receive Date: 20111011
  Receipt Date: 20111005
  Transmission Date: 20120403
  Serious: Yes (Other)
  Sender: FDA-Public Use
  Company Number: PHHY2011DE09278

PATIENT
  Sex: Female
  Weight: 57.5 kg

DRUGS (1)
  1. ZOLEDRONOC ACID [Suspect]
     Indication: OSTEOPOROSIS
     Dosage: 5 MG, ONCE YEARLY
     Route: 042
     Dates: start: 20110112

REACTIONS (11)
  - DIZZINESS [None]
  - MALAISE [None]
  - HYPOAESTHESIA [None]
  - DIARRHOEA [None]
  - LOSS OF CONSCIOUSNESS [None]
  - DRY MOUTH [None]
  - PARAESTHESIA [None]
  - HYPERHIDROSIS [None]
  - FALL [None]
  - CONTUSION [None]
  - CONFUSIONAL STATE [None]
